FAERS Safety Report 4704641-3 (Version None)
Quarter: 2005Q2

REPORT INFORMATION
  Report Type: 
  Country: None (occurrence: None)
  Receive Date: 20050629
  Receipt Date: 20050615
  Transmission Date: 20051028
  Serious: Yes (Hospitalization)
  Sender: FDA-Public Use
  Company Number: DSA_26634_2005

PATIENT
  Age: 49 Year
  Sex: Female

DRUGS (3)
  1. TAVOR [Suspect]
     Dosage: 5 MG ONCE PO
     Route: 048
     Dates: start: 20050609, end: 20050609
  2. DOMINAL ^ASTA^ [Suspect]
     Dosage: 200 MG ONCE PO
     Route: 048
     Dates: start: 20050609, end: 20050609
  3. STANGYL [Suspect]
     Dosage: 1000 MG QWK PO
     Route: 048
     Dates: start: 20050609, end: 20050609

REACTIONS (5)
  - BOWEL SOUNDS ABNORMAL [None]
  - FATIGUE [None]
  - INTENTIONAL MISUSE [None]
  - MULTIPLE DRUG OVERDOSE [None]
  - TACHYCARDIA [None]
